FAERS Safety Report 16468595 (Version 1)
Quarter: 2019Q2

REPORT INFORMATION
  Report Type: Spontaneous
  Country: MY (occurrence: MY)
  Receive Date: 20190624
  Receipt Date: 20190624
  Transmission Date: 20190711
  Serious: Yes (Life-Threatening, Other)
  Sender: FDA-Public Use
  Company Number: MY-PFIZER INC-2019264193

PATIENT
  Age: 74 Year
  Sex: Male

DRUGS (1)
  1. PAMISOL [Suspect]
     Active Substance: PAMIDRONATE DISODIUM
     Indication: HYPERCALCAEMIA
     Dosage: 30 MG, DOSE INTERVAL OF 1 DAY
     Route: 042

REACTIONS (1)
  - Stevens-Johnson syndrome [Recovering/Resolving]
